FAERS Safety Report 13210912 (Version 3)
Quarter: 2017Q1

REPORT INFORMATION
  Report Type: Spontaneous
  Country: US (occurrence: US)
  Receive Date: 20170209
  Receipt Date: 20170317
  Transmission Date: 20170428
  Serious: Yes (Hospitalization, Other)
  Sender: FDA-Public Use
  Company Number: US-LUNDBECK-DKLU2020897

PATIENT
  Age: 65 Year
  Sex: Male

DRUGS (6)
  1. NORTHERA [Suspect]
     Active Substance: DROXIDOPA
     Route: 065
  2. VELCADE [Suspect]
     Active Substance: BORTEZOMIB
     Indication: AMYLOIDOSIS
     Route: 065
  3. NORTHERA [Suspect]
     Active Substance: DROXIDOPA
     Route: 065
  4. NORTHERA [Suspect]
     Active Substance: DROXIDOPA
     Indication: AUTONOMIC NERVOUS SYSTEM IMBALANCE
     Dosage: 100MG AM, 400MG AT NOON, AND 200MG OR 300MG IN THE EVENING
     Route: 065
     Dates: start: 20160923
  5. NORTHERA [Suspect]
     Active Substance: DROXIDOPA
     Dosage: 200MG OR 300MG IN EVENING DEPENDING ON BP
     Route: 065
  6. NORTHERA [Suspect]
     Active Substance: DROXIDOPA
     Indication: NEUROPATHY PERIPHERAL
     Route: 065
     Dates: start: 201610

REACTIONS (18)
  - Abasia [Unknown]
  - Loss of consciousness [Unknown]
  - Asthenia [Unknown]
  - Diarrhoea [Unknown]
  - Syncope [Unknown]
  - Hypertension [Unknown]
  - Weight increased [Unknown]
  - Peripheral swelling [Unknown]
  - Hypotension [Unknown]
  - Oxygen saturation decreased [Unknown]
  - Condition aggravated [Unknown]
  - Haemoglobin decreased [Unknown]
  - Neuropathy peripheral [Unknown]
  - Drug intolerance [Unknown]
  - Headache [Unknown]
  - Nausea [Unknown]
  - Fatigue [Unknown]
  - Dizziness [Unknown]

NARRATIVE: CASE EVENT DATE: 20170309
